FAERS Safety Report 9143998 (Version 1)
Quarter: 2013Q1

REPORT INFORMATION
  Report Type: Spontaneous
  Country: US (occurrence: US)
  Receive Date: 20130306
  Receipt Date: 20130306
  Transmission Date: 20140127
  Serious: No
  Sender: FDA-Public Use
  Company Number: US-ASTRAZENECA-2013SE12641

PATIENT
  Age: 74 Year
  Sex: Female
  Weight: 62.6 kg

DRUGS (5)
  1. NEXIUM [Suspect]
     Indication: GASTROOESOPHAGEAL REFLUX DISEASE
     Route: 048
     Dates: start: 20130221
  2. MECLIZINE [Concomitant]
     Indication: DIZZINESS
  3. CYMBALTA [Concomitant]
     Indication: NERVOUS SYSTEM DISORDER
  4. BUSPAR [Concomitant]
     Indication: DEPRESSION
  5. TRIAM T [Concomitant]
     Indication: MENIERE^S DISEASE

REACTIONS (3)
  - Skin disorder [Not Recovered/Not Resolved]
  - Pruritus [Not Recovered/Not Resolved]
  - Erythema [Not Recovered/Not Resolved]
